FAERS Safety Report 23344108 (Version 1)
Quarter: 2023Q4

REPORT INFORMATION
  Report Type: Report from Study
  Country: US (occurrence: US)
  Receive Date: 20231227
  Receipt Date: 20231227
  Transmission Date: 20240110
  Serious: Yes (Other)
  Sender: FDA-Public Use
  Company Number: US-ABBVIE-5560942

PATIENT
  Sex: Female

DRUGS (2)
  1. HUMIRA [Suspect]
     Active Substance: ADALIMUMAB
     Indication: Product used for unknown indication
     Dosage: FORM STRENGTH: 40 MILLIGRAM,?LAST ADMIN DATE: 2023
     Route: 058
     Dates: start: 20230804
  2. HUMIRA [Suspect]
     Active Substance: ADALIMUMAB
     Dosage: FIST  ADMIN DATE: 2023,?UP DOSED
     Route: 058

REACTIONS (4)
  - Blindness [Unknown]
  - Neoplasm malignant [Unknown]
  - Pain [Unknown]
  - Therapeutic product effect incomplete [Unknown]

NARRATIVE: CASE EVENT DATE: 20230101
